FAERS Safety Report 25920611 (Version 1)
Quarter: 2025Q4

REPORT INFORMATION
  Report Type: Spontaneous
  Country: US (occurrence: US)
  Receive Date: 20251014
  Receipt Date: 20251014
  Transmission Date: 20260117
  Serious: Yes (Other)
  Sender: FENNEC PHARMACEUTICALS
  Company Number: US-FENNEC PHARMACEUTICALS, INC.-2025FEN00074

PATIENT
  Sex: Male
  Weight: 77.179 kg

DRUGS (19)
  1. PEDMARK [Suspect]
     Active Substance: SODIUM THIOSULFATE
     Indication: Ototoxicity
     Dosage: CYCLE#1: 37.5 GRAMS (20 MG/2) OVER 30-69 MINUTES (3 VIALS PER INFUSION)
     Route: 042
     Dates: start: 20250721, end: 20250721
  2. PEDMARK [Suspect]
     Active Substance: SODIUM THIOSULFATE
     Dosage: CYCLE#1: 37.4 GRAMS OVER 45 MINUTES (3 VIALS PER INFUSION)
     Route: 042
     Dates: start: 20250722, end: 20250722
  3. PEDMARK [Suspect]
     Active Substance: SODIUM THIOSULFATE
     Dosage: CYCLE#1: 37.4 GRAMS OVER 45 MINUTES (3 VIALS PER INFUSION)
     Route: 042
     Dates: start: 20250723, end: 20250723
  4. PEDMARK [Suspect]
     Active Substance: SODIUM THIOSULFATE
     Dosage: CYCLE#1: 37.4 GRAMS OVER 45 MINUTES (3 VIALS PER INFUSION)
     Route: 042
     Dates: start: 20250724, end: 20250724
  5. PEDMARK [Suspect]
     Active Substance: SODIUM THIOSULFATE
     Dosage: CYCLE#1: 37.4 GRAMS OVER 45 MINUTES (3 VIALS PER INFUSION)
     Route: 042
     Dates: start: 20250725, end: 20250725
  6. PEDMARK [Suspect]
     Active Substance: SODIUM THIOSULFATE
     Dosage: CYCLE#2: 37.4 GRAMS OVER 30-60 MINUTES DAYS 1-5 EVERY 21 DAYS
     Route: 042
     Dates: start: 20250818, end: 20250822
  7. PEDMARK [Suspect]
     Active Substance: SODIUM THIOSULFATE
     Dosage: CYCLE#3: 37.4 GRAMS OVER 30-60 MINUTES/3 VIALS PER INFUSION
     Route: 042
     Dates: start: 20250915
  8. BENADRYL [Suspect]
     Active Substance: DIPHENHYDRAMINE HYDROCHLORIDE
     Dosage: UNK
     Route: 042
  9. CISPLATIN [Suspect]
     Active Substance: CISPLATIN
  10. LORAZEPAM [Concomitant]
     Active Substance: LORAZEPAM
     Dosage: 0.5 MG, 30-60 MINS BEFORE PEDMARK
     Route: 048
  11. ONDANSETRON [Concomitant]
     Active Substance: ONDANSETRON
     Dosage: 8 MG, EVERY 6 HOURS AS NEEDED
  12. PROMETHAZINE [Concomitant]
     Active Substance: PROMETHAZINE HYDROCHLORIDE
     Dosage: 12.5 MG AS NEEDED
     Route: 048
  13. OLANZAPINE [Concomitant]
     Active Substance: OLANZAPINE
     Dosage: 2.5 MG, 1X/DAY AT BEDTIME
  14. CLARITIN [Concomitant]
     Active Substance: LORATADINE
     Dosage: 10 MG, 1X/DAY
     Route: 048
  15. DEXAMETHASONE [Concomitant]
     Active Substance: DEXAMETHASONE
     Dosage: 4 MG TAKES DAYS 6-8 AFTER EACH DAY 1-5 CYCLE
     Route: 048
  16. COMPAZINE [Concomitant]
     Active Substance: PROCHLORPERAZINE MALEATE
     Dosage: 10 MG, EVERY 8 HOURS AS NEEDED
  17. NEXIUM [Concomitant]
     Active Substance: ESOMEPRAZOLE MAGNESIUM
     Dosage: 40 MG, 1X/DAY AT NIGHT
  18. LEXAPRO [Concomitant]
     Active Substance: ESCITALOPRAM OXALATE
     Dosage: 20 MG, 1X/DAY
     Route: 048
  19. ADDERALL [Concomitant]
     Active Substance: AMPHETAMINE ASPARTATE\AMPHETAMINE SULFATE\DEXTROAMPHETAMINE SACCHARATE\DEXTROAMPHETAMINE SULFATE
     Dosage: 20 MG, 2X/DAY

REACTIONS (15)
  - Neutropenia [Unknown]
  - Somnolence [Unknown]
  - Fatigue [Unknown]
  - Sneezing [Unknown]
  - Pallor [Recovered/Resolved]
  - Hyperhidrosis [Recovered/Resolved]
  - Hiccups [Unknown]
  - Brain fog [Unknown]
  - Thirst [Unknown]
  - Hypoacusis [Unknown]
  - Nausea [Unknown]
  - Vomiting [Unknown]
  - Neutrophil count decreased [Unknown]
  - Incorrect dose administered [Recovered/Resolved]
  - Off label use [Unknown]

NARRATIVE: CASE EVENT DATE: 20250101
